FAERS Safety Report 10038707 (Version 1)
Quarter: 2014Q1

REPORT INFORMATION
  Report Type: Spontaneous
  Country: US (occurrence: US)
  Receive Date: 20140326
  Receipt Date: 20140326
  Transmission Date: 20141002
  Serious: No
  Sender: FDA-Public Use
  Company Number: US-BAYER-2014-044973

PATIENT
  Age: 81 Year
  Sex: Male
  Weight: 76.19 kg

DRUGS (1)
  1. ALEVE CAPLET [Suspect]
     Indication: ARTHRITIS
     Dosage: 1 DF, EVERY 8 HOURS
     Route: 048
     Dates: start: 20140321

REACTIONS (1)
  - Drug ineffective [None]
